APPROVED DRUG PRODUCT: SPS
Active Ingredient: SODIUM POLYSTYRENE SULFONATE
Strength: 15GM/60ML
Dosage Form/Route: SUSPENSION;ORAL, RECTAL
Application: A087859 | Product #001 | TE Code: AA
Applicant: CMP PHARMA INC
Approved: Dec 8, 1982 | RLD: Yes | RS: Yes | Type: RX